FAERS Safety Report 5873028-2 (Version None)
Quarter: 2008Q3

REPORT INFORMATION
  Report Type: 
  Country: None (occurrence: None)
  Receive Date: 20080903
  Receipt Date: 20080822
  Transmission Date: 20090109
  Serious: Yes (Other)
  Sender: FDA-Public Use
  Company Number: 2008BI021816

PATIENT
  Sex: Male

DRUGS (1)
  1. AVONEX [Suspect]
     Dosage: IM
     Route: 030
     Dates: start: 20010101, end: 20080811

REACTIONS (1)
  - THYROID CANCER [None]
